FAERS Safety Report 7431820-7 (Version None)
Quarter: 2011Q2

REPORT INFORMATION
  Report Type: 
  Country: None (occurrence: None)
  Receive Date: 20110422
  Receipt Date: 20110407
  Transmission Date: 20111010
  Serious: Yes (Other)
  Sender: FDA-Public Use
  Company Number: PHHY2011US32957

PATIENT
  Sex: Male

DRUGS (14)
  1. DIOVAN [Suspect]
     Dosage: 1 DF, 150 MG PER DAY
     Route: 048
  2. TERAZOSIN [Concomitant]
     Dosage: 1 DF, QD
     Route: 048
  3. PROPRANOLOL [Concomitant]
     Dosage: 1 DF, TID
     Route: 048
  4. CALCIUM [Concomitant]
     Dosage: 1 DF (315-200 MG), BID
  5. PRAZOSIN HCL [Concomitant]
     Dosage: 1 DF, QD
     Route: 048
  6. TRAMADOL HCL [Concomitant]
     Indication: PAIN
  7. LAMOTRIGINE [Concomitant]
     Dosage: 1 DF, BID
     Route: 048
  8. IBUPROFEN [Concomitant]
     Indication: PAIN
     Dosage: 2 DF, Q6H
  9. ASPIRIN [Concomitant]
     Dosage: 1 DF, QD
  10. OMEPRAZOLE [Concomitant]
     Dosage: 1 DF, QD
     Route: 048
  11. CITALOPRAM HYDROBROMIDE [Concomitant]
     Dosage: 0.5 DF, QD
  12. FISH OIL [Concomitant]
     Dosage: 1 DF, BID
  13. MULTI-VITAMINS [Concomitant]
     Dosage: 1 DF, QD
     Route: 048
  14. VALIUM [Concomitant]
     Dosage: 10 MG, Q8H

REACTIONS (15)
  - NEUROPATHY PERIPHERAL [None]
  - INTERVERTEBRAL DISC DEGENERATION [None]
  - MUSCULAR WEAKNESS [None]
  - URINARY RETENTION [None]
  - TREMOR [None]
  - CEREBELLAR SYNDROME [None]
  - NECK PAIN [None]
  - PAIN IN EXTREMITY [None]
  - GAIT DISTURBANCE [None]
  - FRONTOTEMPORAL DEMENTIA [None]
  - BALANCE DISORDER [None]
  - PERIPHERAL COLDNESS [None]
  - HOFFMANN'S SIGN [None]
  - RADICULAR PAIN [None]
  - MEMORY IMPAIRMENT [None]
